FAERS Safety Report 6618791-8 (Version None)
Quarter: 2010Q1

REPORT INFORMATION
  Report Type: 
  Country: None (occurrence: None)
  Receive Date: 20100308
  Receipt Date: 20100303
  Transmission Date: 20100710
  Serious: Yes (Other)
  Sender: FDA-Public Use
  Company Number: US-BRISTOL-MYERS SQUIBB COMPANY-15003049

PATIENT
  Age: 72 Year
  Sex: Male

DRUGS (10)
  1. AVAPRO [Suspect]
     Indication: HYPERTENSION
     Dosage: DURATION:5-8 YEARS
  2. KAPIDEX [Concomitant]
  3. HYDROCORTISONE [Concomitant]
  4. PEPCID [Concomitant]
  5. MEGACE [Concomitant]
  6. ZYRTEC [Concomitant]
  7. ROZEREM [Concomitant]
  8. DURAGESIC-100 [Concomitant]
  9. TRAMADOL HCL [Concomitant]
  10. PROMETHAZINE [Concomitant]

REACTIONS (1)
  - ARTERIAL OCCLUSIVE DISEASE [None]
